FAERS Safety Report 10434413 (Version 1)
Quarter: 2014Q3

REPORT INFORMATION
  Report Type: Spontaneous
  Country: CH (occurrence: CH)
  Receive Date: 20140905
  Receipt Date: 20140905
  Transmission Date: 20150326
  Serious: Yes (Other)
  Sender: FDA-Public Use
  Company Number: PHHY2014CH108329

PATIENT
  Sex: Female

DRUGS (13)
  1. RIAMET [Suspect]
     Active Substance: ARTEMETHER\LUMEFANTRINE
     Indication: MALARIA
     Dosage: 4 DF, BID
     Route: 048
     Dates: start: 20140728, end: 20140730
  2. PURSANA [Suspect]
     Active Substance: FIG FRUIT OIL\SORBITOL
     Indication: CONSTIPATION
     Dosage: 15 MG, QD
     Route: 048
     Dates: start: 20140728
  3. LAXOBERON [Concomitant]
     Active Substance: SODIUM PICOSULFATE
     Indication: CONSTIPATION
     Dosage: 10 GTT, QD
     Route: 048
     Dates: start: 20140728
  4. PROPOFOL. [Concomitant]
     Active Substance: PROPOFOL
     Indication: ANAESTHESIA
     Dosage: UNK UKN, UNK
     Route: 041
     Dates: start: 20140724, end: 20140725
  5. CEFTRIAXONE. [Concomitant]
     Active Substance: CEFTRIAXONE
     Indication: URINARY TRACT INFECTION
     Dosage: 2 G, UNK
     Route: 040
     Dates: start: 20140723, end: 20140723
  6. SUXAMETHONIUM [Suspect]
     Active Substance: SUCCINYLCHOLINE
     Indication: ENDOTRACHEAL INTUBATION
     Dosage: 60 MG, UNK
     Route: 040
     Dates: start: 20140724, end: 20140724
  7. ARTESUNATE [Suspect]
     Active Substance: ARTESUNATE
     Indication: CEREBRAL MALARIA
     Dosage: 150 MG, QD(2.4 MG/KG 2X DURING THE FIRST 24 HOURS THEN 1X/24HOURS)
     Route: 040
     Dates: start: 20140723, end: 20140727
  8. MOVICOL [Suspect]
     Active Substance: POLYETHYLENE GLYCOL 3350\POTASSIUM CHLORIDE\SODIUM BICARBONATE\SODIUM CHLORIDE
     Indication: CONSTIPATION
     Dosage: 1 DF, QD
     Route: 048
     Dates: start: 20140728
  9. DAFALGAN [Concomitant]
     Active Substance: ACETAMINOPHEN
     Dosage: 1 G, TID
     Route: 048
     Dates: start: 20140724
  10. CALCIPARINE [Suspect]
     Active Substance: HEPARIN CALCIUM
     Indication: THROMBOSIS PROPHYLAXIS
     Dosage: 5000 IU, BID
     Route: 058
     Dates: start: 20140725
  11. PHENYLEPHRINE [Suspect]
     Active Substance: PHENYLEPHRINE\PHENYLEPHRINE HYDROCHLORIDE
     Indication: PROCEDURAL HYPOTENSION
     Dosage: 100 UG, UNK
     Route: 040
     Dates: start: 20140724, end: 20140724
  12. ETOMIDATE. [Suspect]
     Active Substance: ETOMIDATE
     Indication: ENDOTRACHEAL INTUBATION
     Dosage: 20 MG, UNK
     Route: 040
     Dates: start: 20140724, end: 20140724
  13. FENTANYL. [Suspect]
     Active Substance: FENTANYL
     Indication: ENDOTRACHEAL INTUBATION
     Dosage: 50 UG, UNK
     Route: 040
     Dates: start: 20140724, end: 20140724

REACTIONS (1)
  - Maternal exposure during pregnancy [Unknown]
